FAERS Safety Report 14647382 (Version 3)
Quarter: 2022Q3

REPORT INFORMATION
  Report Type: Spontaneous
  Country: US (occurrence: US)
  Receive Date: 20180316
  Receipt Date: 20220708
  Transmission Date: 20221026
  Serious: No
  Sender: FDA-Public Use
  Company Number: US-PFIZER INC-2018105201

PATIENT
  Age: 60 Year
  Sex: Female

DRUGS (13)
  1. XELJANZ XR [Suspect]
     Active Substance: TOFACITINIB CITRATE
     Indication: Rheumatoid arthritis
     Dosage: UNK, 2X/DAY
  2. XELJANZ XR [Suspect]
     Active Substance: TOFACITINIB CITRATE
     Dosage: 11 MG, DAILY
     Route: 048
     Dates: start: 202007
  3. TRAMADOL HCL [Concomitant]
     Active Substance: TRAMADOL HYDROCHLORIDE
     Dosage: UNK
  4. METHOTREXATE SODIUM [Concomitant]
     Active Substance: METHOTREXATE SODIUM
     Dosage: UNK
  5. COLACE [Concomitant]
     Active Substance: DOCUSATE SODIUM
     Dosage: UNK
  6. HERBALS\TURMERIC [Concomitant]
     Active Substance: HERBALS\TURMERIC
     Dosage: UNK
  7. PREDNISONE [Concomitant]
     Active Substance: PREDNISONE
     Dosage: UNK
  8. VITAMIN D3 [Concomitant]
     Active Substance: CHOLECALCIFEROL
     Dosage: UNK (VITAMIN D-400)
  9. CALCIUM [Concomitant]
     Active Substance: CALCIUM
     Dosage: UNK, (CALCIUM 500(1250) TABLET)
  10. CLARITIN [Concomitant]
     Active Substance: LORATADINE
     Dosage: UNK
  11. VALACYCLOVIR [Concomitant]
     Active Substance: VALACYCLOVIR HYDROCHLORIDE
     Dosage: UNK
  12. MOBIC [Concomitant]
     Active Substance: MELOXICAM
     Dosage: UNK
  13. MODERNA COVID-19 VACCINE [Concomitant]
     Active Substance: ELASOMERAN
     Dosage: UNK (EUA)

REACTIONS (3)
  - Hepatic steatosis [Not Recovered/Not Resolved]
  - Overdose [Unknown]
  - Therapeutic product effect incomplete [Unknown]
